FAERS Safety Report 6855071-X (Version None)
Quarter: 2010Q3

REPORT INFORMATION
  Report Type: 
  Country: None (occurrence: None)
  Receive Date: 20100717
  Receipt Date: 20081125
  Transmission Date: 20110219
  Serious: Yes (Life-Threatening, Hospitalization)
  Sender: FDA-Public Use
  Company Number: US-PFIZER INC-2007108761

PATIENT
  Age: 36 Year
  Sex: Female
  Weight: 65.76 kg

DRUGS (5)
  1. CHANTIX [Suspect]
     Indication: SMOKING CESSATION THERAPY
     Dosage: 0.5 MG, 2X/DAY
     Dates: start: 20070209, end: 20070601
  2. DEXAMETHASONE [Concomitant]
     Dosage: UNK
  3. FLORINEF [Concomitant]
     Dosage: UNK
  4. SYNTHROID [Concomitant]
     Dosage: UNK
  5. VITAMINS [Concomitant]
     Dosage: UNK

REACTIONS (3)
  - APHASIA [None]
  - ASTHENIA [None]
  - HYPERKALAEMIA [None]
